FAERS Safety Report 8151356-8 (Version None)
Quarter: 2012Q1

REPORT INFORMATION
  Report Type: 
  Country: None (occurrence: None)
  Receive Date: 20120220
  Receipt Date: 20120220
  Transmission Date: 20120608
  Serious: Yes (Other)
  Sender: FDA-Public Use
  Company Number: JP-BRACCO-005665

PATIENT
  Age: 34 Year
  Sex: Male

DRUGS (1)
  1. IOPAMIDOL [Suspect]
     Indication: SCAN WITH CONTRAST
     Route: 042
     Dates: start: 20110201, end: 20110201

REACTIONS (1)
  - ERYTHEMA MULTIFORME [None]
